FAERS Safety Report 6883596-X (Version None)
Quarter: 2010Q3

REPORT INFORMATION
  Report Type: 
  Country: None (occurrence: None)
  Receive Date: 20100729
  Receipt Date: 20100726
  Transmission Date: 20110219
  Serious: Yes (Other)
  Sender: FDA-Public Use
  Company Number: AU-BRISTOL-MYERS SQUIBB COMPANY-15173255

PATIENT
  Age: 53 Year
  Sex: Female

DRUGS (1)
  1. ORENCIA [Suspect]
     Route: 042
     Dates: start: 20091101

REACTIONS (1)
  - SYSTEMIC LUPUS ERYTHEMATOSUS [None]
